FAERS Safety Report 9382845 (Version 1)
Quarter: 2013Q3

REPORT INFORMATION
  Report Type: Spontaneous
  Country: CA (occurrence: CA)
  Receive Date: 20130703
  Receipt Date: 20130703
  Transmission Date: 20140515
  Serious: Yes (Hospitalization)
  Sender: FDA-Public Use
  Company Number: CA-009507513-1307CAN001933

PATIENT
  Age: 55 Year
  Sex: Female

DRUGS (3)
  1. VICTRELIS TRIPLE [Suspect]
     Indication: HEPATITIS C
     Dosage: 150 MICROGRAM, UNK
     Route: 065
     Dates: start: 201302
  2. VICTRELIS TRIPLE [Suspect]
     Dosage: 1200 MG, QD
     Route: 048
     Dates: start: 201302
  3. VICTRELIS TRIPLE [Suspect]
     Dosage: 2400 MG, QD
     Route: 048
     Dates: start: 201302

REACTIONS (1)
  - Rectal haemorrhage [Unknown]
